FAERS Safety Report 17755822 (Version 1)
Quarter: 2020Q2

REPORT INFORMATION
  Report Type: Spontaneous
  Country: GB (occurrence: GB)
  Receive Date: 20200507
  Receipt Date: 20200507
  Transmission Date: 20200714
  Serious: Yes (Death)
  Sender: FDA-Public Use
  Company Number: NVSC2020GB122818

PATIENT
  Age: 33 Year
  Sex: Male

DRUGS (1)
  1. METHOTREXATE. [Suspect]
     Active Substance: METHOTREXATE
     Indication: PSORIASIS
     Dosage: UNK
     Route: 065

REACTIONS (10)
  - Cough [Fatal]
  - Pleurisy [Fatal]
  - Chest pain [Fatal]
  - Pyrexia [Fatal]
  - Coronavirus infection [Fatal]
  - Dyspnoea [Fatal]
  - Ill-defined disorder [Fatal]
  - Pallor [Fatal]
  - Decreased appetite [Fatal]
  - Chills [Fatal]
